FAERS Safety Report 5818196-3 (Version None)
Quarter: 2008Q3

REPORT INFORMATION
  Report Type: 
  Country: None (occurrence: None)
  Receive Date: 20080722
  Receipt Date: 20071102
  Transmission Date: 20090109
  Serious: No
  Sender: FDA-Public Use
  Company Number: US-BAYER-US-2007-041710

PATIENT
  Age: 57 Year
  Sex: Female
  Weight: 84 kg

DRUGS (2)
  1. MAGNEVIST [Suspect]
     Indication: NUCLEAR MAGNETIC RESONANCE IMAGING
     Dosage: UNIT DOSE: 17 ML
     Route: 042
     Dates: start: 20071025, end: 20071025
  2. ATIVAN [Concomitant]
     Indication: PREMEDICATION
     Route: 042
     Dates: start: 20071025, end: 20071025

REACTIONS (4)
  - EYE PRURITUS [None]
  - INJECTION SITE URTICARIA [None]
  - OCULAR HYPERAEMIA [None]
  - SNEEZING [None]
